FAERS Safety Report 11755524 (Version 1)
Quarter: 2015Q4

REPORT INFORMATION
  Report Type: Spontaneous
  Country: CA (occurrence: None)
  Receive Date: 20151118
  Receipt Date: 20151118
  Transmission Date: 20160304
  Serious: No
  Sender: FDA-Public Use
  Company Number: None

PATIENT
  Age: 69 Year
  Sex: Female
  Weight: 72.58 kg

DRUGS (4)
  1. CEFUROXIME AXETIL. [Suspect]
     Active Substance: CEFUROXIME AXETIL
     Indication: BRONCHITIS
     Dosage: 2 PILLS PER DAY
     Dates: start: 20151104, end: 20151109
  2. FUROSEMIDE. [Concomitant]
     Active Substance: FUROSEMIDE
  3. CRESTOR [Concomitant]
     Active Substance: ROSUVASTATIN CALCIUM
  4. LOSEC [Concomitant]
     Active Substance: OMEPRAZOLE

REACTIONS (6)
  - Nausea [None]
  - Abdominal pain [None]
  - Cough [None]
  - Malaise [None]
  - Throat irritation [None]
  - Incorrect drug administration duration [None]

NARRATIVE: CASE EVENT DATE: 20151104
